FAERS Safety Report 19596575 (Version 1)
Quarter: 2021Q3

REPORT INFORMATION
  Report Type: Spontaneous
  Country: LT (occurrence: LT)
  Receive Date: 20210722
  Receipt Date: 20210722
  Transmission Date: 20211014
  Serious: Yes (Other)
  Sender: FDA-Public Use
  Company Number: LT-ALLERGAN-2126221US

PATIENT
  Sex: Female
  Weight: 63 kg

DRUGS (2)
  1. COMIRNATY [Suspect]
     Active Substance: TOZINAMERAN
     Indication: COVID-19 IMMUNISATION
     Dosage: 0.3 ML, SINGLE
     Route: 030
     Dates: start: 20210518, end: 20210518
  2. BIMATOPROST;TIMOLOL UNK [Suspect]
     Active Substance: BIMATOPROST\TIMOLOL MALEATE
     Indication: GLAUCOMA
     Dosage: 0.3 MG, BID
     Route: 047

REACTIONS (5)
  - Lymphadenopathy [Recovering/Resolving]
  - Myalgia [Recovering/Resolving]
  - Arthralgia [Recovering/Resolving]
  - Pyrexia [Recovering/Resolving]
  - Headache [Recovering/Resolving]

NARRATIVE: CASE EVENT DATE: 20210519
